FAERS Safety Report 7483161-X (Version None)
Quarter: 2011Q2

REPORT INFORMATION
  Report Type: 
  Country: None (occurrence: None)
  Receive Date: 20110516
  Receipt Date: 20100629
  Transmission Date: 20111010
  Serious: Yes (Hospitalization)
  Sender: FDA-Public Use
  Company Number: US-AMGEN-KDL413552

PATIENT
  Age: 67 Year
  Sex: Female

DRUGS (14)
  1. AMLODIPINE BESYLATE [Concomitant]
     Dosage: 10 MG, QD
  2. TAMSULOSIN HCL [Concomitant]
     Dosage: .4 MG, QD
  3. OSCAL [Concomitant]
     Dosage: 500 MG, TID
  4. RANITIDINE [Concomitant]
     Dosage: 300 MG, QD
  5. LORATADINE [Concomitant]
     Dosage: 10 MG, PRN
  6. METFORMIN HCL [Concomitant]
     Dosage: 500 MG, QD
  7. PANADEINE CO [Concomitant]
     Dosage: UNK UNK, PRN
  8. CELECOXIB [Concomitant]
     Dosage: 200 MG, BID
  9. PREGABALIN [Concomitant]
     Dosage: 100 MG, QD
  10. IBANDRONATE [Concomitant]
     Dosage: 150 MG, QMO
  11. LORSARTAN POTASSIUM HYDROCHLORIDE [Concomitant]
     Dosage: UNK UNK, QD
  12. MELPHALAN HYDROCHLORIDE [Concomitant]
     Dosage: 10 MG, QD
  13. ACETYL SALICYLIC ACID USP BAT [Concomitant]
     Dosage: 81 MG, QD
  14. ENBREL [Suspect]
     Indication: RHEUMATOID ARTHRITIS
     Dosage: 50 MG, QWK
     Route: 058
     Dates: start: 20100501

REACTIONS (9)
  - HEARING IMPAIRED [None]
  - WALKING AID USER [None]
  - INJECTION SITE PAIN [None]
  - INJECTION SITE HAEMATOMA [None]
  - UROSEPSIS [None]
  - DIARRHOEA [None]
  - ESCHERICHIA SEPSIS [None]
  - RHEUMATOID ARTHRITIS [None]
  - DRUG INEFFECTIVE [None]
